FAERS Safety Report 6416106-1 (Version None)
Quarter: 2009Q4

REPORT INFORMATION
  Report Type: 
  Country: None (occurrence: None)
  Receive Date: 20091027
  Receipt Date: 20090916
  Transmission Date: 20100525
  Serious: Yes (Other)
  Sender: FDA-Public Use
  Company Number: US-MERCK-0907USA02645

PATIENT
  Age: 63 Year
  Sex: Female
  Weight: 40 kg

DRUGS (7)
  1. FOSAMAX [Suspect]
     Indication: OSTEOPOROSIS
     Route: 048
     Dates: start: 20020101, end: 20040101
  2. EVISTA [Concomitant]
     Indication: OSTEOPOROSIS
     Route: 048
     Dates: start: 20040101
  3. SYNTHROID [Concomitant]
     Route: 065
  4. CRESTOR [Concomitant]
     Route: 065
  5. INDERAL [Concomitant]
     Route: 065
  6. FOSAMAX PLUS D [Suspect]
     Route: 048
     Dates: start: 20060101, end: 20090701
  7. FORTEO [Suspect]
     Route: 065
     Dates: start: 20040901, end: 20060901

REACTIONS (1)
  - OSTEONECROSIS [None]
